FAERS Safety Report 12443102 (Version 2)
Quarter: 2016Q2

REPORT INFORMATION
  Report Type: Spontaneous
  Country: RU (occurrence: RU)
  Receive Date: 20160607
  Receipt Date: 20160629
  Transmission Date: 20160815
  Serious: Yes (Hospitalization, Other)
  Sender: FDA-Public Use
  Company Number: RU-JNJFOC-20160522169

PATIENT

DRUGS (2)
  1. HUMAN CLOTTABLE PROTEIN/HUMAN THROMBIN [Suspect]
     Active Substance: FIBRINOGEN HUMAN\THROMBIN HUMAN
     Indication: PERIPHERAL NERVE DECOMPRESSION
     Route: 061
  2. ALL  OTHER THERAPEUTIC PRODUCTS [Concomitant]
     Active Substance: UNSPECIFIED INGREDIENT
     Indication: PERIPHERAL NERVE DECOMPRESSION
     Route: 061

REACTIONS (4)
  - Cerebrospinal fluid leakage [Unknown]
  - Off label use [Unknown]
  - Post procedural complication [Unknown]
  - Deafness [Unknown]
